FAERS Safety Report 12505200 (Version 2)
Quarter: 2016Q3

REPORT INFORMATION
  Report Type: Spontaneous
  Country: US (occurrence: US)
  Receive Date: 20160628
  Receipt Date: 20160711
  Transmission Date: 20161109
  Serious: Yes (Hospitalization, Other)
  Sender: FDA-Public Use
  Company Number: US-GLAXOSMITHKLINE-US2016090884

PATIENT
  Age: 86 Year
  Sex: Female

DRUGS (1)
  1. ADVAIR DISKUS [Suspect]
     Active Substance: FLUTICASONE PROPIONATE\SALMETEROL XINAFOATE
     Indication: CHRONIC OBSTRUCTIVE PULMONARY DISEASE
     Dosage: 250/50 MCG

REACTIONS (7)
  - Headache [Unknown]
  - Fall [Unknown]
  - Malaise [Unknown]
  - Brain neoplasm malignant [Unknown]
  - Hip fracture [Unknown]
  - Rehabilitation therapy [Unknown]
  - Emergency care [Unknown]

NARRATIVE: CASE EVENT DATE: 201601
